FAERS Safety Report 10075957 (Version 1)
Quarter: 2014Q2

REPORT INFORMATION
  Report Type: Spontaneous
  Country: US (occurrence: US)
  Receive Date: 20140414
  Receipt Date: 20140414
  Transmission Date: 20141212
  Serious: Yes (Other)
  Sender: FDA-Public Use
  Company Number: PHEH2014US007061

PATIENT
  Sex: Male

DRUGS (3)
  1. LOTREL [Suspect]
     Dosage: UNK UKN, UNK (AMLO 2.5 MG, BENA 10 MG)
  2. LOTREL [Suspect]
     Dosage: UNK UKN, UNK (AMLO 5 MG, BENA 10 MG)
  3. MICARDIS [Suspect]
     Dosage: UNK UKN, UNK

REACTIONS (3)
  - Back disorder [Unknown]
  - Pain [Unknown]
  - Blood pressure fluctuation [Unknown]
